FAERS Safety Report 7475983-6 (Version None)
Quarter: 2011Q2

REPORT INFORMATION
  Report Type: 
  Country: None (occurrence: None)
  Receive Date: 20110512
  Receipt Date: 20110509
  Transmission Date: 20111010
  Serious: Yes (Hospitalization)
  Sender: FDA-Public Use
  Company Number: DE-US-EMD SERONO, INC.-7044385

PATIENT
  Sex: Female

DRUGS (2)
  1. MIANSERIN [Concomitant]
     Dosage: 30 MG AT NIGHT
  2. REBIF [Suspect]
     Indication: MULTIPLE SCLEROSIS
     Route: 058
     Dates: start: 20090312, end: 20110225

REACTIONS (15)
  - SENSORY DISTURBANCE [None]
  - AGGRESSION [None]
  - BLOOD CHOLESTEROL INCREASED [None]
  - RED BLOOD CELLS URINE POSITIVE [None]
  - CYSTITIS NONINFECTIVE [None]
  - SACCADIC EYE MOVEMENT [None]
  - REFLEXES ABNORMAL [None]
  - NAUSEA [None]
  - NEUTROPHIL COUNT ABNORMAL [None]
  - MULTIPLE SCLEROSIS RELAPSE [None]
  - DEPRESSION [None]
  - STRESS [None]
  - GAMMA-GLUTAMYLTRANSFERASE INCREASED [None]
  - MIGRAINE WITHOUT AURA [None]
  - RED BLOOD CELL SEDIMENTATION RATE ABNORMAL [None]
